FAERS Safety Report 5216279-2 (Version None)
Quarter: 2007Q1

REPORT INFORMATION
  Report Type: 
  Country: None (occurrence: None)
  Receive Date: 20070123
  Receipt Date: 20070111
  Transmission Date: 20070707
  Serious: Yes (Other)
  Sender: FDA-Public Use
  Company Number: CH-PFIZER INC-2007003105

PATIENT
  Sex: Female
  Weight: 81 kg

DRUGS (2)
  1. DOXORUBICIN HYDROCHLORIDE [Suspect]
     Route: 042
     Dates: start: 20031016, end: 20031016
  2. VINCRISTINE SULFATE [Suspect]
     Route: 042
     Dates: start: 20031016, end: 20031016

REACTIONS (2)
  - EXTRAVASATION [None]
  - FEELING COLD [None]
